FAERS Safety Report 25504360 (Version 2)
Quarter: 2025Q3

REPORT INFORMATION
  Report Type: Report from Study
  Country: KR (occurrence: KR)
  Receive Date: 20250702
  Receipt Date: 20250811
  Transmission Date: 20251021
  Serious: Yes (Hospitalization)
  Sender: PFIZER
  Company Number: KR-PFIZER INC-PV202500077221

PATIENT
  Age: 75 Year
  Sex: Male
  Weight: 67.7 kg

DRUGS (5)
  1. LORLATINIB [Suspect]
     Active Substance: LORLATINIB
     Indication: Non-small cell lung cancer
     Dosage: 100 MG, 1X/DAY
     Route: 048
     Dates: start: 20250508, end: 20250524
  2. REXIPIN [Concomitant]
     Indication: Prophylaxis
     Route: 048
     Dates: start: 20231206, end: 20250522
  3. CODAEWON [Concomitant]
     Indication: Prophylaxis
     Route: 048
     Dates: start: 20250122
  4. FENTADUR [Concomitant]
     Indication: Pain management
     Route: 062
     Dates: start: 20240117, end: 20250522
  5. FLUTICASONE FUROATE\VILANTEROL TRIFENATATE [Concomitant]
     Active Substance: FLUTICASONE FUROATE\VILANTEROL TRIFENATATE
     Indication: Prophylaxis
     Route: 055
     Dates: start: 20231227

REACTIONS (2)
  - Dizziness [Recovered/Resolved]
  - Decreased appetite [Recovered/Resolved]

NARRATIVE: CASE EVENT DATE: 20250523
